FAERS Safety Report 10696775 (Version 1)
Quarter: 2015Q1

REPORT INFORMATION
  Report Type: Spontaneous
  Country: US (occurrence: US)
  Receive Date: 20150108
  Receipt Date: 20150108
  Transmission Date: 20150721
  Serious: Yes (Other)
  Sender: FDA-Public Use
  Company Number: US-ORION CORPORATION ORION PHARMA-ENT 2015-0002

PATIENT
  Age: 58 Year
  Sex: Male

DRUGS (2)
  1. LEVODOPA [Suspect]
     Active Substance: LEVODOPA
     Indication: PARKINSON^S DISEASE
     Route: 065
  2. ENTACAPONE. [Suspect]
     Active Substance: ENTACAPONE
     Indication: PARKINSON^S DISEASE
     Route: 065

REACTIONS (4)
  - Drug effect decreased [Unknown]
  - Muscle rigidity [Recovering/Resolving]
  - Dyskinesia [Recovering/Resolving]
  - Poor quality sleep [Recovering/Resolving]
